FAERS Safety Report 7314710-X (Version None)
Quarter: 2011Q1

REPORT INFORMATION
  Report Type: 
  Country: None (occurrence: None)
  Receive Date: 20110225
  Receipt Date: 20101111
  Transmission Date: 20110831
  Serious: No
  Sender: FDA-Public Use
  Company Number: US-MYLANLABS-2010S1020947

PATIENT
  Age: 22 Year
  Sex: Female

DRUGS (6)
  1. TRINESSA [Concomitant]
     Indication: CONTRACEPTION
  2. FOLIC ACID [Concomitant]
  3. AMNESTEEM [Suspect]
     Indication: ACNE
     Route: 048
     Dates: start: 20100801
  4. MULTIVITAMIN [Concomitant]
  5. IRON [Concomitant]
  6. TOPAMAX [Concomitant]
     Indication: MIGRAINE

REACTIONS (3)
  - ABDOMINAL PAIN UPPER [None]
  - DIARRHOEA [None]
  - NAUSEA [None]
